FAERS Safety Report 24587725 (Version 1)
Quarter: 2024Q4

REPORT INFORMATION
  Report Type: Spontaneous
  Country: US (occurrence: US)
  Receive Date: 20241107
  Receipt Date: 20241107
  Transmission Date: 20250115
  Serious: No
  Sender: BLUEPRINT MEDICINES
  Company Number: US-Blueprint Medicines Corporation-5187

PATIENT
  Age: 71 Year
  Sex: Male

DRUGS (2)
  1. AYVAKIT [Suspect]
     Active Substance: AVAPRITINIB
     Indication: Diffuse cutaneous mastocytosis
     Route: 065
     Dates: start: 202310
  2. AYVAKIT [Suspect]
     Active Substance: AVAPRITINIB
     Indication: Indolent systemic mastocytosis

REACTIONS (3)
  - Abdominal distension [Unknown]
  - Abdominal pain upper [Unknown]
  - Memory impairment [Unknown]

NARRATIVE: CASE EVENT DATE: 20240714
